FAERS Safety Report 9128402 (Version 1)
Quarter: 2013Q1

REPORT INFORMATION
  Report Type: Spontaneous
  Country: US (occurrence: US)
  Receive Date: 20130228
  Receipt Date: 20130228
  Transmission Date: 20140127
  Serious: No
  Sender: FDA-Public Use
  Company Number: US-GLAXOSMITHKLINE-A0978407A

PATIENT
  Age: 55 Year
  Sex: Female

DRUGS (7)
  1. SUMATRIPTAN SUCCINATE [Suspect]
     Indication: MIGRAINE
     Dosage: 4MG AS REQUIRED
     Route: 058
     Dates: start: 2011, end: 2011
  2. NEXIUM [Concomitant]
  3. TOPAMAX [Concomitant]
  4. FOLIC ACID [Concomitant]
  5. VYTORIN [Concomitant]
  6. LIALDA [Concomitant]
  7. PHENERGAN [Concomitant]

REACTIONS (2)
  - Drug ineffective [Unknown]
  - Overdose [Unknown]
